FAERS Safety Report 7270012-1 (Version None)
Quarter: 2011Q1

REPORT INFORMATION
  Report Type: 
  Country: None (occurrence: None)
  Receive Date: 20110125
  Receipt Date: 20110110
  Transmission Date: 20110831
  Serious: Yes (Hospitalization)
  Sender: FDA-Public Use
  Company Number: AUR-APL-2011-00284

PATIENT
  Age: 72 Year
  Sex: Male

DRUGS (1)
  1. SIMVASTATIN [Suspect]
     Dosage: 20MG

REACTIONS (6)
  - GAIT DISTURBANCE [None]
  - MUSCULAR WEAKNESS [None]
  - FATIGUE [None]
  - AMNESIA [None]
  - DIZZINESS [None]
  - BALANCE DISORDER [None]
